FAERS Safety Report 11472717 (Version 2)
Quarter: 2016Q1

REPORT INFORMATION
  Report Type: Spontaneous
  Country: DE (occurrence: DE)
  Receive Date: 20150908
  Receipt Date: 20160211
  Transmission Date: 20160525
  Serious: Yes (Life-Threatening, Hospitalization, Other)
  Sender: FDA-Public Use
  Company Number: DE-GILEAD-2015-0167635

PATIENT
  Age: 59 Year
  Sex: Male
  Weight: 108 kg

DRUGS (2)
  1. ZYDELIG [Suspect]
     Active Substance: IDELALISIB
     Indication: CHRONIC LYMPHOCYTIC LEUKAEMIA
     Dosage: 150 MG, BID
     Route: 065
     Dates: start: 201504, end: 20150706
  2. TINZAPARIN [Concomitant]
     Active Substance: TINZAPARIN
     Dosage: 18000 IU, UNK
     Route: 058

REACTIONS (5)
  - Colitis [Recovering/Resolving]
  - Inflammatory bowel disease [Unknown]
  - Enteritis [Recovering/Resolving]
  - Diarrhoea [Recovered/Resolved]
  - Cytomegalovirus infection [Unknown]

NARRATIVE: CASE EVENT DATE: 20150706
